FAERS Safety Report 6993663-8 (Version None)
Quarter: 2010Q3

REPORT INFORMATION
  Report Type: 
  Country: None (occurrence: None)
  Receive Date: 20100917
  Receipt Date: 20070727
  Transmission Date: 20110219
  Serious: No
  Sender: FDA-Public Use
  Company Number: US-ASTRAZENECA-2007UW25290

PATIENT
  Age: 21439 Day
  Sex: Female
  Weight: 81.2 kg

DRUGS (9)
  1. SEROQUEL [Suspect]
     Indication: MAJOR DEPRESSION
     Dosage: 50 MG - 400 MG
     Route: 048
     Dates: start: 20030701, end: 20060301
  2. SEROQUEL [Suspect]
     Indication: SCHIZOPHRENIA
     Dosage: 50 MG - 400 MG
     Route: 048
     Dates: start: 20030701, end: 20060301
  3. SEROQUEL [Suspect]
     Indication: SLEEP DISORDER
     Dosage: 50 MG - 400 MG
     Route: 048
     Dates: start: 20030701, end: 20060301
  4. SEROQUEL [Suspect]
     Dosage: 50 - 100 MG AT NIGHT
     Route: 048
     Dates: start: 20030710, end: 20060301
  5. SEROQUEL [Suspect]
     Dosage: 50 - 100 MG AT NIGHT
     Route: 048
     Dates: start: 20030710, end: 20060301
  6. SEROQUEL [Suspect]
     Dosage: 50 - 100 MG AT NIGHT
     Route: 048
     Dates: start: 20030710, end: 20060301
  7. ZYPREXA [Concomitant]
     Indication: DEPRESSION
     Route: 048
     Dates: start: 20030101, end: 20030701
  8. TRAZODONE HCL [Concomitant]
     Dosage: 1- 2 TABLETS AT NIGHT AS NEEDED
     Dates: start: 20060301
  9. WELLBUTRIN SR [Concomitant]
     Dosage: 100 - 200 MG DAILY
     Route: 048
     Dates: start: 20030710

REACTIONS (4)
  - ANGINA PECTORIS [None]
  - CARDIAC DISORDER [None]
  - DYSPNOEA [None]
  - TYPE 2 DIABETES MELLITUS [None]
